FAERS Safety Report 4520651-3 (Version None)
Quarter: 2004Q4

REPORT INFORMATION
  Report Type: 
  Country: None (occurrence: None)
  Receive Date: 20041203
  Receipt Date: 20041129
  Transmission Date: 20050328
  Serious: Yes (Other)
  Sender: FDA-Public Use
  Company Number: TPA2004A01260

PATIENT
  Age: 28 Year
  Sex: Female
  Weight: 78.4723 kg

DRUGS (6)
  1. ACTOS [Suspect]
     Indication: INSULIN RESISTANCE SYNDROME
     Dosage: 30 MG, 1 IN 1 D, PER ORAL
     Route: 048
     Dates: start: 20031218, end: 20040201
  2. PROZAC [Concomitant]
  3. LANTUS (INSULIN GLARGINE )(INJECTION) [Concomitant]
  4. HCTZ (HYDROCHLOROTHIAZIDE) (25 MILLIGRAM) [Concomitant]
  5. LOVASTATIN (LOVASTATIN) (40 MILLIGRMA) [Concomitant]
  6. NOVOLOG [Concomitant]

REACTIONS (2)
  - ABORTION SPONTANEOUS [None]
  - DRUG EXPOSURE DURING PREGNANCY [None]
